FAERS Safety Report 21711268 (Version 1)
Quarter: 2022Q4

REPORT INFORMATION
  Report Type: Report from Study
  Country: CA (occurrence: CA)
  Receive Date: 20221212
  Receipt Date: 20221212
  Transmission Date: 20230113
  Serious: Yes (Hospitalization, Other)
  Sender: FDA-Public Use
  Company Number: CA-BRISTOL-MYERS SQUIBB COMPANY-2022-149347

PATIENT
  Age: 81 Year
  Sex: Female
  Weight: 70.30 kg

DRUGS (1)
  1. ORENCIA [Suspect]
     Active Substance: ABATACEPT
     Indication: Rheumatoid arthritis
     Dosage: 4 WEEKS
     Route: 042
     Dates: start: 20130602

REACTIONS (2)
  - Loss of consciousness [Unknown]
  - Epilepsy [Unknown]

NARRATIVE: CASE EVENT DATE: 20220101
